FAERS Safety Report 12231211 (Version 1)
Quarter: 2016Q2

REPORT INFORMATION
  Report Type: Spontaneous
  Country: US (occurrence: US)
  Receive Date: 20160401
  Receipt Date: 20160401
  Transmission Date: 20160815
  Serious: Yes (Hospitalization, Other)
  Sender: FDA-Public Use
  Company Number: US-MDT-ADR-2016-00605

PATIENT
  Age: 57 Year
  Sex: Male

DRUGS (3)
  1. BACLOFEN, UNKNOWN [Suspect]
     Active Substance: BACLOFEN
     Route: 037
  2. DILAUDID [Suspect]
     Active Substance: HYDROMORPHONE HYDROCHLORIDE
     Route: 037
  3. FENTANYL. [Suspect]
     Active Substance: FENTANYL
     Route: 037

REACTIONS (1)
  - Oesophageal carcinoma [Unknown]
